FAERS Safety Report 4319846-3 (Version None)
Quarter: 2004Q1

REPORT INFORMATION
  Report Type: 
  Country: None (occurrence: None)
  Receive Date: 20040316
  Receipt Date: 20040301
  Transmission Date: 20041129
  Serious: Yes (Hospitalization, Other)
  Sender: FDA-Public Use
  Company Number: USA040258828

PATIENT
  Age: 74 Year
  Sex: Female
  Weight: 45 kg

DRUGS (8)
  1. FORTEO [Suspect]
     Indication: OSTEOPOROSIS
     Dates: start: 20030101, end: 20040209
  2. FORTEO [Suspect]
     Indication: RHEUMATOID ARTHRITIS
     Dates: start: 20030101, end: 20040209
  3. VASOTEC [Concomitant]
  4. BEXTRA [Concomitant]
  5. ROBAXIN [Concomitant]
  6. MEDROL [Concomitant]
  7. METHOTREXATE [Concomitant]
  8. LASIX [Concomitant]

REACTIONS (11)
  - ERYTHEMA [None]
  - FLUSHING [None]
  - HEART RATE INCREASED [None]
  - HEART RATE IRREGULAR [None]
  - IMPAIRED HEALING [None]
  - INJECTION SITE ERYTHEMA [None]
  - MEDICATION ERROR [None]
  - PALPITATIONS [None]
  - PHARMACEUTICAL PRODUCT COMPLAINT [None]
  - SKIN LACERATION [None]
  - STAPHYLOCOCCAL INFECTION [None]
